FAERS Safety Report 6806403-X (Version None)
Quarter: 2010Q2

REPORT INFORMATION
  Report Type: 
  Country: None (occurrence: None)
  Receive Date: 20100629
  Receipt Date: 20080505
  Transmission Date: 20101027
  Serious: No
  Sender: FDA-Public Use
  Company Number: US-PFIZER INC-2008016524

PATIENT
  Sex: Male

DRUGS (2)
  1. VIAGRA [Suspect]
  2. GENERAL NUTRIENTS [Concomitant]

REACTIONS (2)
  - DRUG EFFECT INCREASED [None]
  - ERECTION INCREASED [None]
